FAERS Safety Report 8791235 (Version 1)
Quarter: 2012Q4

REPORT INFORMATION
  Report Type: Spontaneous
  Country: FR (occurrence: None)
  Receive Date: 20120911
  Receipt Date: 20120911
  Transmission Date: 20130627
  Serious: Yes (Other)
  Sender: FDA-Public Use
  Company Number: FR-PROVEPHARM-000006

PATIENT
  Age: 75 Year
  Sex: Male

DRUGS (1)
  1. METHYLTHIONINIUM CHLORIDE [Suspect]
     Dosage: 1.00-Dosage

REACTIONS (4)
  - Shock [None]
  - Urticaria [None]
  - Anaphylactic reaction [None]
  - Skin test positive [None]
